FAERS Safety Report 20531000 (Version 3)
Quarter: 2022Q1

REPORT INFORMATION
  Report Type: Report from Study
  Country: IT (occurrence: IT)
  Receive Date: 20220301
  Receipt Date: 20220327
  Transmission Date: 20220423
  Serious: Yes (Death, Hospitalization)
  Sender: FDA-Public Use
  Company Number: IT-ABBVIE-22K-083-4295460-00

PATIENT
  Age: 84 Year
  Sex: Female

DRUGS (2)
  1. CARBIDOPA\LEVODOPA [Suspect]
     Active Substance: CARBIDOPA\LEVODOPA
     Indication: Parkinson^s disease
     Dosage: TOTAL DAILY DOSE (MG) 1.221 PUMP SETTING MD: 7 PLUS 3 CR: 3,1 (15H), ED: 3
     Route: 050
     Dates: start: 20160718, end: 20220323
  2. CARBIDOPA\LEVODOPA [Suspect]
     Active Substance: CARBIDOPA\LEVODOPA

REACTIONS (2)
  - Post procedural complication [Fatal]
  - Femur fracture [Recovered/Resolved]

NARRATIVE: CASE EVENT DATE: 20220201
